FAERS Safety Report 14251252 (Version 2)
Quarter: 2017Q4

REPORT INFORMATION
  Report Type: Spontaneous
  Country: CH (occurrence: CH)
  Receive Date: 20171205
  Receipt Date: 20171214
  Transmission Date: 20180321
  Serious: Yes (Life-Threatening, Hospitalization, Other)
  Sender: FDA-Public Use
  Company Number: CH-GILEAD-2017-0307674

PATIENT
  Age: 68 Year
  Sex: Male

DRUGS (8)
  1. ZYLORIC [Concomitant]
     Active Substance: ALLOPURINOL
  2. ASPIRIN CARDIO [Concomitant]
     Active Substance: ASPIRIN
  3. EPRIL [Concomitant]
     Active Substance: ENALAPRIL MALEATE
  4. TORASEMIDE [Concomitant]
     Active Substance: TORSEMIDE
  5. CLEXANE [Concomitant]
     Active Substance: ENOXAPARIN SODIUM
  6. GENVOYA [Suspect]
     Active Substance: COBICISTAT\ELVITEGRAVIR\EMTRICITABINE\TENOFOVIR ALAFENAMIDE FUMARATE
     Indication: HIV CARRIER
     Dosage: 150 MG, QD
     Route: 048
     Dates: start: 20170825, end: 20171113
  7. GENVOYA [Suspect]
     Active Substance: COBICISTAT\ELVITEGRAVIR\EMTRICITABINE\TENOFOVIR ALAFENAMIDE FUMARATE
     Dosage: 150 MG, QD
     Route: 048
     Dates: start: 20171115
  8. DAFALGAN [Concomitant]
     Active Substance: ACETAMINOPHEN
     Indication: PAIN

REACTIONS (1)
  - Cardiac failure [Recovered/Resolved]

NARRATIVE: CASE EVENT DATE: 20170918
